FAERS Safety Report 7715974-0 (Version None)
Quarter: 2011Q3

REPORT INFORMATION
  Report Type: 
  Country: None (occurrence: None)
  Receive Date: 20110829
  Receipt Date: 20110823
  Transmission Date: 20111222
  Serious: Yes (Hospitalization, Other)
  Sender: FDA-Public Use
  Company Number: BR-SANOFI-AVENTIS-2011SA054436

PATIENT
  Sex: Male

DRUGS (1)
  1. LANTUS [Suspect]

REACTIONS (3)
  - NOSOCOMIAL INFECTION [None]
  - RENAL FAILURE [None]
  - THROMBOSIS [None]
